FAERS Safety Report 8986803 (Version 1)
Quarter: 2012Q4

REPORT INFORMATION
  Report Type: 
  Country: IT (occurrence: IT)
  Receive Date: 20121227
  Receipt Date: 20121227
  Transmission Date: 20130627
  Serious: Yes (Disabling)
  Sender: FDA-Public Use
  Company Number: PHHY2012IT119799

PATIENT
  Sex: Male

DRUGS (1)
  1. ZOMETA [Suspect]
     Indication: PROSTATE CANCER
     Dosage: 9 DF, UNK
     Route: 042
     Dates: start: 20110906, end: 20120706

REACTIONS (1)
  - Osteonecrosis of jaw [Recovered/Resolved with Sequelae]
